FAERS Safety Report 10100836 (Version 1)
Quarter: 2014Q2

REPORT INFORMATION
  Report Type: Spontaneous
  Country: US (occurrence: US)
  Receive Date: 20140423
  Receipt Date: 20140423
  Transmission Date: 20141212
  Serious: No
  Sender: FDA-Public Use
  Company Number: US-009507513-1404USA011741

PATIENT
  Age: 61 Year
  Sex: Female

DRUGS (3)
  1. DULERA [Suspect]
     Indication: ASTHMA
     Dosage: 100/5 MCG, 2 INHALATIONS, TWICE DAILY
     Route: 055
     Dates: start: 20140401, end: 20140418
  2. SYMBICORT [Concomitant]
  3. PREMARIN [Concomitant]

REACTIONS (2)
  - Musculoskeletal chest pain [Not Recovered/Not Resolved]
  - Pain [Not Recovered/Not Resolved]
